FAERS Safety Report 19292818 (Version 1)
Quarter: 2021Q2

REPORT INFORMATION
  Report Type: Report from Study
  Country: IN (occurrence: IN)
  Receive Date: 20210524
  Receipt Date: 20210524
  Transmission Date: 20210717
  Serious: Yes (Death, Hospitalization)
  Sender: FDA-Public Use
  Company Number: NVSC2021IN075671

PATIENT
  Age: 44 Year
  Sex: Female

DRUGS (2)
  1. TASIGNA [Suspect]
     Active Substance: NILOTINIB
     Dosage: 400 MG,BID (ON ALTERNATIVE DAYS)
     Route: 065
     Dates: start: 20210310
  2. TASIGNA [Suspect]
     Active Substance: NILOTINIB
     Indication: CHRONIC MYELOID LEUKAEMIA
     Dosage: 400 MG, BID
     Route: 065
     Dates: start: 20170713, end: 20210309

REACTIONS (4)
  - Blood test abnormal [Recovering/Resolving]
  - Dyspnoea [Fatal]
  - Inappropriate schedule of product administration [Unknown]
  - Asthenia [Fatal]

NARRATIVE: CASE EVENT DATE: 20210310
